FAERS Safety Report 5407479-7 (Version None)
Quarter: 2007Q3

REPORT INFORMATION
  Report Type: 
  Country: None (occurrence: None)
  Receive Date: 20070807
  Receipt Date: 20070725
  Transmission Date: 20080115
  Serious: Yes (Other)
  Sender: FDA-Public Use
  Company Number: GB-ELI_LILLY_AND_COMPANY-GB200707006086

PATIENT
  Sex: Male

DRUGS (4)
  1. CYMBALTA [Suspect]
     Dosage: 60 MG, DAILY (1/D)
  2. CARBAMAZEPINE [Interacting]
     Indication: AGGRESSION
     Dosage: UNK, DAILY (1/D)
  3. EFFEXOR [Interacting]
     Indication: DEPRESSION
     Dosage: 225 MG, DAILY (1/D)
     Route: 048
  4. EFFEXOR [Interacting]
     Dosage: 150 MG, DAILY (1/D)
     Route: 048

REACTIONS (3)
  - DRUG INTERACTION [None]
  - HOMICIDAL IDEATION [None]
  - HOMICIDE [None]
